FAERS Safety Report 7461590-8 (Version None)
Quarter: 2011Q2

REPORT INFORMATION
  Report Type: 
  Country: None (occurrence: None)
  Receive Date: 20110427
  Receipt Date: 20110412
  Transmission Date: 20111010
  Serious: Yes (Other)
  Sender: FDA-Public Use
  Company Number: 2011MA003909

PATIENT
  Sex: Female

DRUGS (1)
  1. METOCLOPRAMIDE [Suspect]
     Dates: start: 20070101, end: 20090101

REACTIONS (10)
  - DYSTONIA [None]
  - TARDIVE DYSKINESIA [None]
  - INJURY [None]
  - DYSKINESIA [None]
  - RESTLESS LEGS SYNDROME [None]
  - PARKINSON'S DISEASE [None]
  - EXTRAPYRAMIDAL DISORDER [None]
  - EMOTIONAL DISORDER [None]
  - CHOREA [None]
  - ECONOMIC PROBLEM [None]
